FAERS Safety Report 4785956-X (Version None)
Quarter: 2005Q4

REPORT INFORMATION
  Report Type: 
  Country: None (occurrence: None)
  Receive Date: 20051003
  Receipt Date: 20050826
  Transmission Date: 20060501
  Serious: Yes (Other)
  Sender: FDA-Public Use
  Company Number: PHBS2005CZ12599

PATIENT
  Sex: Female

DRUGS (1)
  1. ZOMETA [Suspect]
     Indication: MULTIPLE MYELOMA
     Dosage: UNK, ONCE/SINGLE
     Route: 042
     Dates: start: 20050704, end: 20050704

REACTIONS (10)
  - ABSCESS DRAINAGE [None]
  - BONE DISORDER [None]
  - FISTULA [None]
  - JAW DISORDER [None]
  - OSTEOMYELITIS CHRONIC [None]
  - OSTEONECROSIS [None]
  - PAIN IN JAW [None]
  - PURULENT DISCHARGE [None]
  - TOOTH EXTRACTION [None]
  - WOUND DEHISCENCE [None]
